FAERS Safety Report 17203391 (Version 1)
Quarter: 2019Q4

REPORT INFORMATION
  Report Type: Spontaneous
  Country: SE (occurrence: SE)
  Receive Date: 20191226
  Receipt Date: 20191226
  Transmission Date: 20200122
  Serious: Yes (Hospitalization)
  Sender: FDA-Public Use
  Company Number: SE-MYLANLABS-2019M1126599

PATIENT
  Age: 64 Year
  Sex: Female

DRUGS (2)
  1. NAPROXEN. [Suspect]
     Active Substance: NAPROXEN
     Indication: MUSCULOSKELETAL PAIN
     Dosage: UNK
     Dates: start: 2019, end: 2019
  2. FURIX (FUROSEMIDE) [Suspect]
     Active Substance: FUROSEMIDE
     Indication: GENERALISED OEDEMA
     Dosage: UNK
     Dates: start: 201906, end: 201906

REACTIONS (1)
  - Prerenal failure [Unknown]

NARRATIVE: CASE EVENT DATE: 201906
